FAERS Safety Report 18637914 (Version 1)
Quarter: 2020Q4

REPORT INFORMATION
  Report Type: Report from Study
  Country: DE (occurrence: DE)
  Receive Date: 20201218
  Receipt Date: 20201218
  Transmission Date: 20210114
  Serious: Yes (Hospitalization)
  Sender: FDA-Public Use
  Company Number: DE-PFIZER INC-2020235975

PATIENT
  Age: 57 Year
  Sex: Female

DRUGS (5)
  1. METHOTREXATE SODIUM. [Suspect]
     Active Substance: METHOTREXATE SODIUM
     Dosage: 15 MG, WEEKLY
     Dates: end: 202001
  2. NO SUBJECT DRUG [Suspect]
     Active Substance: UNSPECIFIED INGREDIENT
     Dosage: NO DOSE GIVEN
  3. XELJANZ [Suspect]
     Active Substance: TOFACITINIB CITRATE
     Dosage: 10 MG, 1X/DAY
  4. METHOTREXATE SODIUM. [Suspect]
     Active Substance: METHOTREXATE SODIUM
     Dosage: 15 MG, WEEKLY
     Dates: start: 202004
  5. INFLANEFRAN [Concomitant]
     Active Substance: PREDNISOLONE ACETATE
     Dosage: UNK, 5 TIMES DAILY

REACTIONS (2)
  - Conjunctivitis [Recovered/Resolved]
  - Ophthalmic herpes zoster [Recovered/Resolved]

NARRATIVE: CASE EVENT DATE: 20191018
